FAERS Safety Report 13473674 (Version 3)
Quarter: 2017Q2

REPORT INFORMATION
  Report Type: Spontaneous
  Country: US (occurrence: US)
  Receive Date: 20170424
  Receipt Date: 20170516
  Transmission Date: 20170830
  Serious: Yes (Other)
  Sender: FDA-Public Use
  Company Number: US-VIFOR (INTERNATIONAL) INC.-VIT-2017-04377

PATIENT
  Age: 65 Year
  Sex: Male

DRUGS (20)
  1. OXYCODONE HYDROCHLORIDE. [Concomitant]
     Active Substance: OXYCODONE HYDROCHLORIDE
  2. ESCITALOPRAM OXALATE. [Concomitant]
     Active Substance: ESCITALOPRAM OXALATE
  3. EMTRIVA [Concomitant]
     Active Substance: EMTRICITABINE
  4. VELTASSA [Suspect]
     Active Substance: PATIROMER
     Indication: HYPERKALAEMIA
     Route: 048
     Dates: start: 20170405
  5. TAMSULOSIN HYDROCHLORIDE. [Concomitant]
     Active Substance: TAMSULOSIN HYDROCHLORIDE
  6. MAPAP [Concomitant]
     Active Substance: ACETAMINOPHEN
  7. BUMETANIDE. [Concomitant]
     Active Substance: BUMETANIDE
  8. HUMALOG [Concomitant]
     Active Substance: INSULIN LISPRO
  9. FERROUS SULFATE. [Concomitant]
     Active Substance: FERROUS SULFATE
  10. MORPHINE SULFATE. [Concomitant]
     Active Substance: MORPHINE SULFATE
  11. BISAC-EVAC [Concomitant]
     Active Substance: BISACODYL
  12. OMEPRAZOLE. [Concomitant]
     Active Substance: OMEPRAZOLE
  13. SALBUTAMOL SULFATE [Concomitant]
     Active Substance: ALBUTEROL SULFATE
  14. SUSTIVA [Concomitant]
     Active Substance: EFAVIRENZ
  15. ONDANSETRON [Concomitant]
     Active Substance: ONDANSETRON
  16. MEGESTROL ACETATE. [Concomitant]
     Active Substance: MEGESTROL ACETATE
  17. LANTUS SOLOSTAR [Concomitant]
     Active Substance: INSULIN GLARGINE
  18. FLUCONAZOLE. [Concomitant]
     Active Substance: FLUCONAZOLE
  19. CARVEDILOL. [Concomitant]
     Active Substance: CARVEDILOL
  20. VIREAD [Concomitant]
     Active Substance: TENOFOVIR DISOPROXIL FUMARATE

REACTIONS (3)
  - Product quality issue [Unknown]
  - Product taste abnormal [Unknown]
  - Dialysis [Unknown]

NARRATIVE: CASE EVENT DATE: 201704
